FAERS Safety Report 23794592 (Version 4)
Quarter: 2024Q3

REPORT INFORMATION
  Report Type: Spontaneous
  Country: US (occurrence: US)
  Receive Date: 20240429
  Receipt Date: 20240704
  Transmission Date: 20241017
  Serious: No
  Sender: PFIZER
  Company Number: US-PFIZER INC-PV202400054827

PATIENT
  Age: 71 Year

DRUGS (1)
  1. PREMARIN [Suspect]
     Active Substance: ESTROGENS, CONJUGATED
     Dosage: 1 G, 2X/WEEK FOR 90 DAYS (ENDS ON 14JUL2024)
     Route: 067
     Dates: start: 20240415

REACTIONS (1)
  - Off label use [Unknown]
